FAERS Safety Report 19925936 (Version 4)
Quarter: 2021Q4

REPORT INFORMATION
  Report Type: Report from Study
  Country: CA (occurrence: CA)
  Receive Date: 20211007
  Receipt Date: 20211122
  Transmission Date: 20220303
  Serious: Yes (Other)
  Sender: FDA-Public Use
  Company Number: CA-ABBVIE-21K-028-4107705-00

PATIENT
  Sex: Female

DRUGS (6)
  1. RINVOQ [Suspect]
     Active Substance: UPADACITINIB
     Indication: Psoriatic arthropathy
     Route: 048
     Dates: start: 20210907, end: 2021
  2. RINVOQ [Suspect]
     Active Substance: UPADACITINIB
     Route: 048
     Dates: start: 2021
  3. MODERNA COVID-19 VACCINE [Suspect]
     Active Substance: CX-024414
     Indication: COVID-19 immunisation
     Route: 030
     Dates: start: 202104, end: 202104
  4. MODERNA COVID-19 VACCINE [Suspect]
     Active Substance: CX-024414
     Route: 030
     Dates: start: 202106, end: 202106
  5. METHOTREXATE [Concomitant]
     Active Substance: METHOTREXATE
     Indication: Product used for unknown indication
  6. SHINGRIX [Concomitant]
     Active Substance: RECOMBINANT VARICELLA ZOSTER VIRUS (VZV) GLYCOPROTEIN E
     Indication: Product used for unknown indication

REACTIONS (19)
  - Bone disorder [Unknown]
  - Stomatitis [Unknown]
  - Rash [Not Recovered/Not Resolved]
  - Pain in extremity [Not Recovered/Not Resolved]
  - Insomnia [Unknown]
  - Sleep apnoea syndrome [Unknown]
  - Cognitive disorder [Unknown]
  - Balance disorder [Unknown]
  - Wrist fracture [Not Recovered/Not Resolved]
  - Stress [Unknown]
  - Eye haemorrhage [Recovered/Resolved]
  - Back pain [Unknown]
  - Emotional disorder [Unknown]
  - Memory impairment [Unknown]
  - Blister [Recovering/Resolving]
  - Wound haemorrhage [Recovering/Resolving]
  - Rosacea [Not Recovered/Not Resolved]
  - Fatigue [Unknown]
  - Psoriasis [Unknown]

NARRATIVE: CASE EVENT DATE: 20210101
